FAERS Safety Report 5796183-1 (Version None)
Quarter: 2008Q3

REPORT INFORMATION
  Report Type: 
  Country: None (occurrence: None)
  Receive Date: 20080701
  Receipt Date: 20080623
  Transmission Date: 20090109
  Serious: Yes (Other)
  Sender: FDA-Public Use
  Company Number: CA-JNJFOC-20080606340

PATIENT
  Sex: Male

DRUGS (2)
  1. REMICADE [Suspect]
     Indication: CROHN'S DISEASE
     Route: 042
  2. HUMIRA [Concomitant]

REACTIONS (2)
  - CROHN'S DISEASE [None]
  - SHORT-BOWEL SYNDROME [None]
